FAERS Safety Report 14783678 (Version 3)
Quarter: 2018Q4

REPORT INFORMATION
  Report Type: Spontaneous
  Country: DE (occurrence: DE)
  Receive Date: 20180420
  Receipt Date: 20181012
  Transmission Date: 20190204
  Serious: Yes (Hospitalization, Other)
  Sender: FDA-Public Use
  Company Number: DE-JNJFOC-20180418867

PATIENT
  Age: 6 Decade
  Sex: Female
  Weight: 61 kg

DRUGS (6)
  1. MESALAZINE [Concomitant]
     Active Substance: MESALAMINE
     Indication: COLITIS ULCERATIVE
     Route: 065
     Dates: start: 20120310, end: 20121008
  2. ATORVASTATIN [Concomitant]
     Active Substance: ATORVASTATIN
     Route: 065
     Dates: start: 20171114
  3. RIVAROXABAN [Concomitant]
     Active Substance: RIVAROXABAN
     Indication: BLOOD CHOLESTEROL DECREASED
     Route: 065
  4. REMICADE [Suspect]
     Active Substance: INFLIXIMAB
     Indication: COLITIS ULCERATIVE
     Route: 042
     Dates: start: 20130315
  5. SIMPONI [Suspect]
     Active Substance: GOLIMUMAB
     Indication: COLITIS ULCERATIVE
     Route: 058
     Dates: start: 20140321
  6. MUTAFLOR [Concomitant]
     Active Substance: ESCHERICHIA COLI
     Indication: COLITIS ULCERATIVE
     Route: 065
     Dates: start: 20130121, end: 20131130

REACTIONS (5)
  - Cerebral infarction [Recovered/Resolved]
  - Hypertension [Unknown]
  - Migraine with aura [Unknown]
  - Cardiac myxoma [Recovered/Resolved]
  - Embolism [Unknown]

NARRATIVE: CASE EVENT DATE: 201711
